FAERS Safety Report 5938121-4 (Version None)
Quarter: 2008Q4

REPORT INFORMATION
  Report Type: 
  Country: None (occurrence: None)
  Receive Date: 20081031
  Receipt Date: 20081021
  Transmission Date: 20090506
  Serious: Yes (Other)
  Sender: FDA-Public Use
  Company Number: US-PFIZER INC-2008088805

PATIENT
  Age: 40 Year
  Sex: Female

DRUGS (1)
  1. GEODON [Suspect]

REACTIONS (1)
  - SELF INJURIOUS BEHAVIOUR [None]
